FAERS Safety Report 6770429-5 (Version None)
Quarter: 2010Q2

REPORT INFORMATION
  Report Type: 
  Country: None (occurrence: None)
  Receive Date: 20100615
  Receipt Date: 20100611
  Transmission Date: 20101027
  Serious: Yes (Death)
  Sender: FDA-Public Use
  Company Number: CN-ASTRAZENECA-2010SE27270

PATIENT

DRUGS (1)
  1. LIDOCAINE [Suspect]
     Indication: BRONCHOSCOPY
     Route: 061

REACTIONS (1)
  - DRUG TOXICITY [None]
